FAERS Safety Report 21834899 (Version 3)
Quarter: 2023Q1

REPORT INFORMATION
  Report Type: Spontaneous
  Country: US (occurrence: US)
  Receive Date: 20230109
  Receipt Date: 20230306
  Transmission Date: 20230417
  Serious: No
  Sender: FDA-Public Use
  Company Number: US-PFIZER INC-2019391985

PATIENT
  Age: 82 Year
  Sex: Female
  Weight: 60.499 kg

DRUGS (1)
  1. PREMARIN [Suspect]
     Active Substance: ESTROGENS, CONJUGATED
     Dosage: 0.5 G, WEEKLY
     Route: 067

REACTIONS (3)
  - Hypoacusis [Unknown]
  - Off label use [Unknown]
  - Off label use [Unknown]
